FAERS Safety Report 25787966 (Version 2)
Quarter: 2025Q4

REPORT INFORMATION
  Report Type: Spontaneous
  Country: CL (occurrence: CL)
  Receive Date: 20250910
  Receipt Date: 20251001
  Transmission Date: 20260118
  Serious: Yes (Other)
  Sender: HQ SPECIALTY
  Company Number: CL-HQ-20250064

PATIENT
  Age: 66 Year
  Sex: Male

DRUGS (11)
  1. LINEZOLID [Suspect]
     Active Substance: LINEZOLID
     Indication: Peritonitis
     Dosage: INITIAL DOSE: VIA A 1-HOUR INTERMITTENT INFUSION
     Route: 042
  2. LINEZOLID [Suspect]
     Active Substance: LINEZOLID
     Indication: Peritonitis
     Dosage: BASED ON THE SECOND C-MIN FINDINGS DOSE WAS INCREASED
     Route: 042
  3. LINEZOLID [Suspect]
     Active Substance: LINEZOLID
     Indication: Peritonitis
     Dosage: FURTHER INCREASE IN DOSE ON THE DAY OF PROCEDURE DUE TO BLOQ
  4. LINEZOLID [Suspect]
     Active Substance: LINEZOLID
     Indication: Peritonitis
     Dosage: ON DAY 9: AFTER FINDING SUPRATHERAPEUTIC DOSE IN THE BLOOD, DOSE WAS REDUCED VIA CI.
  5. LINEZOLID [Suspect]
     Active Substance: LINEZOLID
     Indication: Peritonitis
     Dosage: SUPRATHERAPEUTIC DOSE WAS REDUCED.
  6. AVIBACTAM SODIUM\CEFTAZIDIME [Concomitant]
     Active Substance: AVIBACTAM SODIUM\CEFTAZIDIME
     Indication: Peritonitis
  7. AZTREONAM [Concomitant]
     Active Substance: AZTREONAM
     Indication: Peritonitis
  8. ANIDULAFUNGIN [Concomitant]
     Active Substance: ANIDULAFUNGIN
     Indication: Peritonitis
  9. FENTANYL [Concomitant]
     Active Substance: FENTANYL
     Indication: Analgesic therapy
  10. KETAMINE [Concomitant]
     Active Substance: KETAMINE
     Indication: Analgesic therapy
  11. PROPOFOL [Concomitant]
     Active Substance: PROPOFOL
     Indication: Sedation

REACTIONS (5)
  - Pyrexia [Recovered/Resolved]
  - Agitation [Recovered/Resolved]
  - Hypertension [Recovered/Resolved]
  - Tachycardia [Recovered/Resolved]
  - Off label use [Recovered/Resolved]
